FAERS Safety Report 6259810-0 (Version None)
Quarter: 2009Q3

REPORT INFORMATION
  Report Type: 
  Country: None (occurrence: None)
  Receive Date: 20090708
  Receipt Date: 20090608
  Transmission Date: 20100115
  Serious: No
  Sender: FDA-Public Use
  Company Number: US-BAYER-200911776BCC

PATIENT
  Age: 87 Year
  Sex: Female
  Weight: 61 kg

DRUGS (6)
  1. ALEVE (CAPLET) [Suspect]
     Indication: HEADACHE
     Dosage: TOOK 1/2 ALEVE CAPLET
     Route: 048
     Dates: start: 20090607, end: 20090607
  2. ATENOLOL [Concomitant]
     Route: 065
  3. ENATRIL GLAUCOMA MEDICATION [Concomitant]
     Route: 065
  4. PREVACID [Concomitant]
     Route: 065
  5. EYE DROPS [Concomitant]
     Route: 065
  6. ASPIRIN [Concomitant]
     Route: 048

REACTIONS (1)
  - HEADACHE [None]
